FAERS Safety Report 8295776-X (Version None)
Quarter: 2012Q2

REPORT INFORMATION
  Report Type: 
  Country: None (occurrence: None)
  Receive Date: 20120418
  Receipt Date: 20120411
  Transmission Date: 20120825
  Serious: Yes (Hospitalization, Other)
  Sender: FDA-Public Use
  Company Number: US-ELI_LILLY_AND_COMPANY-US201202007937

PATIENT
  Sex: Female

DRUGS (5)
  1. GLUCOSAMINE [Concomitant]
  2. ASPIRIN [Concomitant]
  3. FORTEO [Suspect]
     Indication: OSTEOPOROSIS
     Dosage: 20 UG, QD
     Dates: start: 20110818
  4. SYNTHROID [Concomitant]
  5. ANTIHYPERTENSIVES [Concomitant]

REACTIONS (12)
  - HYPOTENSION [None]
  - ARTHRALGIA [None]
  - DYSPNOEA [None]
  - HYPERTENSION [None]
  - BRONCHITIS [None]
  - MYOCARDIAL INFARCTION [None]
  - CHOKING [None]
  - COUGH [None]
  - FALL [None]
  - JOINT INJURY [None]
  - CARDIAC FAILURE CONGESTIVE [None]
  - MALAISE [None]
